FAERS Safety Report 10009647 (Version 1)
Quarter: 2014Q1

REPORT INFORMATION
  Report Type: Spontaneous
  Country: US (occurrence: US)
  Receive Date: 20140312
  Receipt Date: 20140312
  Transmission Date: 20141002
  Serious: No
  Sender: FDA-Public Use
  Company Number: US-INCYTE CORPORATION-2012IN002033

PATIENT
  Sex: Female

DRUGS (7)
  1. JAKAFI [Suspect]
     Indication: SPLENOMEGALY
     Dosage: 20 MG, BID
     Route: 048
  2. JAKAFI [Suspect]
     Indication: WHITE BLOOD CELL COUNT INCREASED
     Dosage: 25 MG, BID
     Route: 048
  3. LIPITOR [Concomitant]
  4. ASPIRIN [Concomitant]
  5. AVASTIN [Concomitant]
  6. GUANFACINE [Concomitant]
  7. ATENOLOL [Concomitant]

REACTIONS (3)
  - Splenomegaly [Unknown]
  - White blood cell count increased [Unknown]
  - Drug ineffective [None]
